FAERS Safety Report 7584817-0 (Version None)
Quarter: 2011Q2

REPORT INFORMATION
  Report Type: 
  Country: None (occurrence: None)
  Receive Date: 20110630
  Receipt Date: 20110623
  Transmission Date: 20111010
  Serious: Yes (Death, Hospitalization, Other)
  Sender: FDA-Public Use
  Company Number: PHHY2011FR36214

PATIENT
  Sex: Male
  Weight: 48 kg

DRUGS (7)
  1. FORADIL [Concomitant]
     Dosage: 2 DF, BID
  2. PREDNISONE [Concomitant]
     Dosage: 20 MG, QD
  3. TASIGNA [Suspect]
     Indication: CHRONIC MYELOID LEUKAEMIA
     Dosage: 800 MG, QD
     Route: 048
     Dates: start: 20090101
  4. MIFLONIL [Concomitant]
     Dosage: 400 UG, BID
  5. METHOTREXATE [Concomitant]
     Dosage: 20 MG, PER WEEK
  6. SPIRIVA [Concomitant]
     Dosage: 1 DF, QD
  7. GLEEVEC [Suspect]
     Indication: CHRONIC MYELOID LEUKAEMIA
     Dosage: 400 MG, QD
     Route: 048
     Dates: start: 20030101, end: 20090101

REACTIONS (10)
  - DERMATOMYOSITIS [None]
  - LUNG NEOPLASM MALIGNANT [None]
  - PLEURAL FIBROSIS [None]
  - CHEST PAIN [None]
  - NEOPLASM MALIGNANT [None]
  - RESPIRATORY ACIDOSIS [None]
  - DYSPNOEA [None]
  - WEIGHT DECREASED [None]
  - RESPIRATORY DISORDER [None]
  - GENERAL PHYSICAL HEALTH DETERIORATION [None]
